FAERS Safety Report 8099418-8 (Version None)
Quarter: 2012Q1

REPORT INFORMATION
  Report Type: 
  Country: None (occurrence: None)
  Receive Date: 20120129
  Receipt Date: 20111006
  Transmission Date: 20120608
  Serious: Yes (Other)
  Sender: FDA-Public Use
  Company Number: US-ABBOTT-11P-163-0861575-00

PATIENT
  Sex: Female
  Weight: 53.572 kg

DRUGS (6)
  1. HUMIRA [Suspect]
     Indication: COLITIS ULCERATIVE
     Route: 058
     Dates: start: 20110520, end: 20110520
  2. SYNTHROID [Concomitant]
     Indication: HYPOTHYROIDISM
  3. ATENOLOL [Concomitant]
     Indication: HYPERTENSION
  4. HUMIRA [Suspect]
     Route: 058
     Dates: start: 20110617, end: 20110901
  5. LIALDA [Concomitant]
     Indication: COLITIS ULCERATIVE
  6. HUMIRA [Suspect]
     Route: 058
     Dates: start: 20110603, end: 20110603

REACTIONS (3)
  - ANTIPHOSPHOLIPID SYNDROME [None]
  - LUPUS-LIKE SYNDROME [None]
  - HERPES ZOSTER [None]
